FAERS Safety Report 4360647-8 (Version None)
Quarter: 2004Q2

REPORT INFORMATION
  Report Type: 
  Country: None (occurrence: None)
  Receive Date: 20040519
  Receipt Date: 20040519
  Transmission Date: 20050107
  Serious: Yes (Hospitalization)
  Sender: FDA-Public Use
  Company Number: None

PATIENT
  Age: 24 Year
  Sex: Female
  Weight: 87.5 kg

DRUGS (5)
  1. GAMUNEX 20GM X 4 BAYER [Suspect]
     Indication: CHRONIC INFLAMMATORY DEMYELINATING POLYRADICULONEUROPATHY
     Dosage: 45 GM DAILY X 2 Q INTRAVENOUS
     Route: 042
     Dates: start: 20040511, end: 20040512
  2. GAMUNEX 5GM X 2 BAYER [Suspect]
  3. GAMMAGARD S/D [Concomitant]
  4. LOVENOX [Concomitant]
  5. WARFARIN SODIUM [Concomitant]

REACTIONS (1)
  - PULMONARY EMBOLISM [None]
